FAERS Safety Report 5022365-2 (Version None)
Quarter: 2006Q2

REPORT INFORMATION
  Report Type: 
  Country: None (occurrence: None)
  Receive Date: 20060605
  Receipt Date: 20060530
  Transmission Date: 20061013
  Serious: Yes (Death, Hospitalization, Other)
  Sender: FDA-Public Use
  Company Number: 200610471BFR

PATIENT
  Age: 50 Year
  Sex: Male
  Weight: 70 kg

DRUGS (28)
  1. SORAFENIB [Suspect]
     Indication: METASTATIC RENAL CELL CARCINOMA
     Dosage: SEE IMAGE
     Route: 048
     Dates: start: 20050523, end: 20050711
  2. SORAFENIB [Suspect]
     Indication: METASTATIC RENAL CELL CARCINOMA
     Dosage: SEE IMAGE
     Route: 048
     Dates: start: 20050711, end: 20050905
  3. SORAFENIB [Suspect]
     Indication: METASTATIC RENAL CELL CARCINOMA
     Dosage: SEE IMAGE
     Route: 048
     Dates: start: 20050905, end: 20051024
  4. SORAFENIB [Suspect]
     Indication: METASTATIC RENAL CELL CARCINOMA
     Dosage: SEE IMAGE
     Route: 048
     Dates: start: 20051024, end: 20051219
  5. SORAFENIB [Suspect]
     Indication: METASTATIC RENAL CELL CARCINOMA
     Dosage: SEE IMAGE
     Route: 048
     Dates: start: 20051219, end: 20060220
  6. SORAFENIB [Suspect]
     Indication: METASTATIC RENAL CELL CARCINOMA
     Dosage: SEE IMAGE
     Route: 048
     Dates: start: 20060220, end: 20060424
  7. SORAFENIB [Suspect]
     Indication: METASTATIC RENAL CELL CARCINOMA
     Dosage: SEE IMAGE
     Route: 048
     Dates: start: 20060424
  8. SORAFENIB [Suspect]
  9. SORAFENIB [Suspect]
  10. SORAFENIB [Suspect]
  11. SORAFENIB [Suspect]
  12. SORAFENIB [Suspect]
  13. SORAFENIB [Suspect]
  14. AVLOCARDYL [Concomitant]
  15. NOCTAMID [Concomitant]
  16. LEXOMIL [Concomitant]
  17. EFFEXOR [Concomitant]
  18. EQUANIL [Concomitant]
  19. DOXYCYCLINE [Concomitant]
  20. ZENIAC [Concomitant]
  21. DIFFERIN [Concomitant]
  22. IMODIUM [Concomitant]
  23. PLAVIX [Concomitant]
  24. ASPIRIN [Concomitant]
  25. BISOPROLOL FUMARATE [Concomitant]
  26. COVERSYL /FRA/ [Concomitant]
  27. PARIET [Concomitant]
  28. QUESTRAN [Suspect]

REACTIONS (2)
  - CORONARY ARTERY INSUFFICIENCY [None]
  - MYOCARDIAL INFARCTION [None]
